FAERS Safety Report 8762794 (Version 1)
Quarter: 2012Q4

REPORT INFORMATION
  Report Type: 
  Country: BE (occurrence: BE)
  Receive Date: 20120830
  Receipt Date: 20120830
  Transmission Date: 20130627
  Serious: Yes (Life-Threatening, Hospitalization)
  Sender: FDA-Public Use
  Company Number: BE-JNJFOC-20120809894

PATIENT
  Age: 42 Year
  Sex: Male

DRUGS (2)
  1. DUROGESIC [Suspect]
     Indication: PAIN
     Route: 062
     Dates: start: 2006, end: 20120821
  2. DUROGESIC [Suspect]
     Indication: PAIN
     Route: 062

REACTIONS (5)
  - Coma [Recovered/Resolved]
  - Respiratory disorder [Recovered/Resolved]
  - Overdose [Recovered/Resolved]
  - Loss of consciousness [Recovered/Resolved]
  - Hospitalisation [Unknown]
